FAERS Safety Report 14441146 (Version 1)
Quarter: 2018Q1

REPORT INFORMATION
  Report Type: Report from Study
  Country: SE (occurrence: SE)
  Receive Date: 20180125
  Receipt Date: 20180125
  Transmission Date: 20180509
  Serious: Yes (Hospitalization)
  Sender: FDA-Public Use
  Company Number: SE-INCYTE CORPORATION-2018IN000612

PATIENT

DRUGS (1)
  1. JAKAVI [Suspect]
     Active Substance: RUXOLITINIB
     Indication: MYELOFIBROSIS
     Dosage: 15 MG, BID
     Route: 048
     Dates: start: 20170324, end: 20170926

REACTIONS (6)
  - Diplopia [Recovering/Resolving]
  - Haemoglobin decreased [Unknown]
  - Dysarthria [Recovering/Resolving]
  - Ophthalmic herpes zoster [Recovering/Resolving]
  - Mydriasis [Recovering/Resolving]
  - Meningoencephalitis herpetic [Recovering/Resolving]

NARRATIVE: CASE EVENT DATE: 20171018
